FAERS Safety Report 9586595 (Version 1)
Quarter: 2013Q4

REPORT INFORMATION
  Report Type: Spontaneous
  Country: AU (occurrence: AU)
  Receive Date: 20131003
  Receipt Date: 20131003
  Transmission Date: 20140711
  Serious: Yes (Death)
  Sender: FDA-Public Use
  Company Number: AU-PFIZER INC-2013278756

PATIENT
  Age: 6 Year
  Sex: Male

DRUGS (3)
  1. VFEND [Suspect]
     Indication: PULMONARY FUNCTION TEST DECREASED
     Dosage: 9MG/KG BID, LOADING DOSE
     Route: 042
  2. VFEND [Suspect]
     Dosage: 7MG/KG BID
     Route: 042
  3. VFEND [Suspect]
     Dosage: 7MG/KG THREE TIMES A DAY

REACTIONS (1)
  - Multi-organ failure [Fatal]
